FAERS Safety Report 10482454 (Version 1)
Quarter: 2014Q3

REPORT INFORMATION
  Report Type: Spontaneous
  Country: DE (occurrence: DE)
  Receive Date: 20140929
  Receipt Date: 20140929
  Transmission Date: 20150326
  Serious: Yes (Hospitalization)
  Sender: FDA-Public Use
  Company Number: DE-PFIZER INC-2014265594

PATIENT
  Sex: Male

DRUGS (1)
  1. SOBELIN [Suspect]
     Active Substance: CLINDAMYCIN HYDROCHLORIDE
     Indication: INFLAMMATION
     Dosage: UNK
     Dates: start: 201406

REACTIONS (1)
  - Gastrointestinal hypomotility [Unknown]

NARRATIVE: CASE EVENT DATE: 201409
